FAERS Safety Report 18425753 (Version 1)
Quarter: 2020Q4

REPORT INFORMATION
  Report Type: Spontaneous
  Country: US (occurrence: US)
  Receive Date: 20201025
  Receipt Date: 20201025
  Transmission Date: 20210114
  Serious: Yes (Hospitalization)
  Sender: FDA-Public Use
  Company Number: None

PATIENT
  Age: 73 Year
  Sex: Female
  Weight: 92.5 kg

DRUGS (18)
  1. ESCITALOPRAM [Concomitant]
     Active Substance: ESCITALOPRAM OXALATE
  2. LIPITOR [Concomitant]
     Active Substance: ATORVASTATIN CALCIUM
  3. HEMAX [Concomitant]
  4. LEVAQUIN [Concomitant]
     Active Substance: LEVOFLOXACIN
  5. IBRANCE [Suspect]
     Active Substance: PALBOCICLIB
     Indication: PRODUCT USED FOR UNKNOWN INDICATION
     Route: 048
     Dates: start: 20201008
  6. AUGMENTIN [Concomitant]
     Active Substance: AMOXICILLIN\CLAVULANATE POTASSIUM
  7. HYDROCHLOROTHIAZIDE. [Concomitant]
     Active Substance: HYDROCHLOROTHIAZIDE
  8. LIPITOR [Concomitant]
     Active Substance: ATORVASTATIN CALCIUM
  9. FEMARA [Concomitant]
     Active Substance: LETROZOLE
  10. AMLODIPINE-VALSARTAN [Concomitant]
     Active Substance: AMLODIPINE\VALSARTAN
  11. MEDROL [Concomitant]
     Active Substance: METHYLPREDNISOLONE
  12. VITAMIN D [Concomitant]
     Active Substance: VITAMIN D NOS
  13. CARISOPRODOL. [Concomitant]
     Active Substance: CARISOPRODOL
  14. EXFORGE [Concomitant]
     Active Substance: AMLODIPINE BESYLATE\VALSARTAN
  15. LIVALO [Concomitant]
     Active Substance: PITAVASTATIN CALCIUM
  16. NEXIUM [Concomitant]
     Active Substance: ESOMEPRAZOLE MAGNESIUM
  17. SYMBICORT [Concomitant]
     Active Substance: BUDESONIDE\FORMOTEROL FUMARATE DIHYDRATE
  18. TESSALON [Concomitant]
     Active Substance: BENZONATATE

REACTIONS (2)
  - Renal failure [None]
  - Pneumonia [None]

NARRATIVE: CASE EVENT DATE: 20201011
